FAERS Safety Report 16794313 (Version 2)
Quarter: 2020Q1

REPORT INFORMATION
  Report Type: Spontaneous
  Country: US (occurrence: US)
  Receive Date: 20190911
  Receipt Date: 20200226
  Transmission Date: 20200409
  Serious: No
  Sender: FDA-Public Use
  Company Number: US-ROCHE-2334464

PATIENT
  Sex: Female
  Weight: 81.72 kg

DRUGS (5)
  1. ALECENSA [Suspect]
     Active Substance: ALECTINIB HYDROCHLORIDE
     Indication: PRODUCT USED FOR UNKNOWN INDICATION
     Dosage: 3 CAPSULE BY MOUTH; ONGOING.
     Route: 048
     Dates: start: 20180807
  2. FLUZONE [INFLUENZA VACCINE] [Concomitant]
     Route: 030
     Dates: start: 20170131
  3. OXYCONTIN [Concomitant]
     Active Substance: OXYCODONE HYDROCHLORIDE
     Dosage: ONGOING: UNKNOWN
     Route: 048
     Dates: start: 20170131
  4. OXYCODONE HYDROCHLORIDE. [Concomitant]
     Active Substance: OXYCODONE HYDROCHLORIDE
     Dosage: ONGOING: UNKNOWN
     Route: 048
     Dates: start: 20170131
  5. XALKORI [Concomitant]
     Active Substance: CRIZOTINIB
     Dosage: ONGOING: UNKNOWN
     Route: 048
     Dates: start: 20170203

REACTIONS (2)
  - Product dose omission [Unknown]
  - No adverse event [Unknown]
